FAERS Safety Report 14979546 (Version 1)
Quarter: 2018Q2

REPORT INFORMATION
  Report Type: Spontaneous
  Country: DE (occurrence: DE)
  Receive Date: 20180606
  Receipt Date: 20180606
  Transmission Date: 20180711
  Serious: Yes (Hospitalization)
  Sender: FDA-Public Use
  Company Number: DE-PFIZER INC-2018227673

PATIENT
  Age: 50 Year
  Sex: Male

DRUGS (6)
  1. CALCITRIOL. [Concomitant]
     Active Substance: CALCITRIOL
     Dosage: 0.25 UG, 1X/DAY
     Route: 048
  2. NOVORAPID [Concomitant]
     Active Substance: INSULIN ASPART
     Dosage: UNK
     Route: 058
  3. PANTOPRAZOL [Concomitant]
     Active Substance: PANTOPRAZOLE SODIUM
     Dosage: 40 MG, 1X/DAY
     Route: 048
  4. RAMIPRIL. [Concomitant]
     Active Substance: RAMIPRIL
     Dosage: 25 MG, 1X/DAY
     Route: 048
  5. MEROPENEM. [Suspect]
     Active Substance: MEROPENEM
     Dosage: 1 MG, 2X/DAY
     Route: 042
  6. VANCOMYCIN [Concomitant]
     Active Substance: VANCOMYCIN
     Dosage: 125 MG, 4X/DAY
     Route: 048

REACTIONS (7)
  - Renal impairment [Unknown]
  - Rash [Unknown]
  - General physical health deterioration [Unknown]
  - Acute generalised exanthematous pustulosis [Unknown]
  - Blister [Unknown]
  - Sepsis [Unknown]
  - Systemic infection [Unknown]
